FAERS Safety Report 18258754 (Version 1)
Quarter: 2020Q3

REPORT INFORMATION
  Report Type: Spontaneous
  Country: BR (occurrence: BR)
  Receive Date: 20200911
  Receipt Date: 20200911
  Transmission Date: 20201103
  Serious: Yes (Other)
  Sender: FDA-Public Use
  Company Number: BR-BAUSCH-BL-2020-026104

PATIENT
  Age: 71 Year
  Sex: Male
  Weight: 65 kg

DRUGS (7)
  1. PANTOPRAZOLE [Concomitant]
     Active Substance: PANTOPRAZOLE
     Indication: GASTRIC DISORDER
  2. XIFAXAN [Suspect]
     Active Substance: RIFAXIMIN
     Indication: HEPATIC ENCEPHALOPATHY
     Route: 048
     Dates: start: 202008, end: 202008
  3. LEVOTHYROXINE. [Concomitant]
     Active Substance: LEVOTHYROXINE
     Indication: HYPOTHYROIDISM
     Dosage: FOR MORE THAN 5 YEARS
  4. HEPA?MERZ [Concomitant]
     Indication: HEPATIC ENCEPHALOPATHY
     Dates: start: 2017, end: 202008
  5. PROPRANOLOL [Concomitant]
     Active Substance: PROPRANOLOL HYDROCHLORIDE
     Indication: VARICOSE VEIN
  6. VELIJA [Concomitant]
     Active Substance: DULOXETINE HYDROCHLORIDE
     Indication: ANXIETY
     Dates: start: 2015
  7. LACTULOSE. [Concomitant]
     Active Substance: LACTULOSE
     Indication: HEPATIC CIRRHOSIS
     Dates: start: 2017

REACTIONS (4)
  - Faeces soft [Recovering/Resolving]
  - Haematochezia [Recovering/Resolving]
  - Frequent bowel movements [Recovering/Resolving]
  - Intentional underdose [Recovered/Resolved]

NARRATIVE: CASE EVENT DATE: 202008
